FAERS Safety Report 22636685 (Version 1)
Quarter: 2023Q2

REPORT INFORMATION
  Report Type: Spontaneous
  Country: US (occurrence: US)
  Receive Date: 20230623
  Receipt Date: 20230623
  Transmission Date: 20230722
  Serious: Yes (Congenital Anomaly, Other)
  Sender: FDA-Public Use
  Company Number: US-TEVA-2023-US-2898738

PATIENT
  Sex: Female

DRUGS (9)
  1. CYCLOBENZAPRINE [Suspect]
     Active Substance: CYCLOBENZAPRINE
     Indication: Migraine
     Dosage: 5-10 MG, PRN
     Route: 048
     Dates: start: 20220420
  2. FIORICET [Suspect]
     Active Substance: ACETAMINOPHEN\BUTALBITAL\CAFFEINE
     Indication: Migraine
     Dosage: PRN
     Route: 048
     Dates: start: 20220511
  3. NARATRIPTAN [Suspect]
     Active Substance: NARATRIPTAN HYDROCHLORIDE
     Indication: Migraine
     Dosage: PRN
     Route: 048
     Dates: start: 202107
  4. NARATRIPTAN [Suspect]
     Active Substance: NARATRIPTAN HYDROCHLORIDE
     Dosage: 5-10 MG PRN
     Route: 048
     Dates: start: 20220511
  5. FLEXERIL [Suspect]
     Active Substance: CYCLOBENZAPRINE HYDROCHLORIDE
     Indication: Migraine
     Dosage: 5-10 MG, PRN
     Route: 048
     Dates: start: 20220511
  6. FLEXERIL [Suspect]
     Active Substance: CYCLOBENZAPRINE HYDROCHLORIDE
     Dosage: 5-10 MG PRN
     Route: 048
     Dates: start: 20220511
  7. TYLENOL [Suspect]
     Active Substance: ACETAMINOPHEN
     Indication: Migraine
     Dosage: 500-1000 MG, PRN
     Route: 048
  8. TYLENOL [Suspect]
     Active Substance: ACETAMINOPHEN
     Dosage: 5-10 MG PRN
     Route: 048
     Dates: start: 20220511
  9. MAGNESIUM [Suspect]
     Active Substance: MAGNESIUM
     Indication: Migraine
     Dosage: 325 MG PRN
     Route: 048
     Dates: start: 20220425

REACTIONS (6)
  - Plagiocephaly [Not Recovered/Not Resolved]
  - Lactation disorder [Unknown]
  - Morning sickness [Recovered/Resolved]
  - Influenza [Recovered/Resolved]
  - Maternal exposure during pregnancy [Unknown]
  - Normal newborn [Unknown]

NARRATIVE: CASE EVENT DATE: 20220511
